FAERS Safety Report 6878459-X (Version None)
Quarter: 2010Q3

REPORT INFORMATION
  Report Type: 
  Country: None (occurrence: None)
  Receive Date: 20100728
  Receipt Date: 20100720
  Transmission Date: 20110219
  Serious: Yes (Other)
  Sender: FDA-Public Use
  Company Number: DE-MERCK-1007DEU00093

PATIENT
  Age: 38 Year
  Sex: Female

DRUGS (1)
  1. PROSCAR [Suspect]
     Route: 065
     Dates: start: 20060101

REACTIONS (3)
  - ABORTION SPONTANEOUS [None]
  - DRUG EXPOSURE DURING PREGNANCY [None]
  - PREGNANCY [None]
